FAERS Safety Report 12108403 (Version 1)
Quarter: 2016Q1

REPORT INFORMATION
  Report Type: Report from Study
  Country: US (occurrence: US)
  Receive Date: 20160224
  Receipt Date: 20160224
  Transmission Date: 20160526
  Serious: No
  Sender: FDA-Public Use
  Company Number: US-AMGEN-USASL2016020903

PATIENT
  Age: 48 Year
  Sex: Female

DRUGS (1)
  1. ENBREL [Suspect]
     Active Substance: ETANERCEPT
     Indication: PALINDROMIC RHEUMATISM
     Dosage: 50 MG, UNK
     Route: 065

REACTIONS (2)
  - Incorrect product storage [Unknown]
  - Off label use [Unknown]

NARRATIVE: CASE EVENT DATE: 20160212
